FAERS Safety Report 7093517-5 (Version None)
Quarter: 2010Q4

REPORT INFORMATION
  Report Type: 
  Country: None (occurrence: None)
  Receive Date: 20101110
  Receipt Date: 20090615
  Transmission Date: 20110411
  Serious: No
  Sender: FDA-Public Use
  Company Number: US-KINGPHARMUSA00001-K200900711

PATIENT
  Age: 71 Year
  Sex: Female

DRUGS (4)
  1. FLECTOR [Suspect]
     Indication: PAIN
     Dosage: 1 PATCH
     Route: 061
     Dates: start: 20090601, end: 20090601
  2. NEXIUM [Concomitant]
     Dosage: UNK
  3. DIURETICS [Concomitant]
     Dosage: UNK
  4. OTHER NUTRIENTS [Concomitant]

REACTIONS (1)
  - DRUG INEFFECTIVE [None]
